FAERS Safety Report 6981250-7 (Version None)
Quarter: 2010Q3

REPORT INFORMATION
  Report Type: 
  Country: None (occurrence: None)
  Receive Date: 20100914
  Receipt Date: 20100906
  Transmission Date: 20110219
  Serious: Yes (Other)
  Sender: FDA-Public Use
  Company Number: BR-ABBOTT-10P-020-0669024-00

PATIENT
  Sex: Female
  Weight: 57 kg

DRUGS (9)
  1. HUMIRA [Suspect]
     Indication: RHEUMATOID ARTHRITIS
     Dosage: 1 APPLICATION EVERY 14 DAYS
     Route: 058
     Dates: start: 20080801
  2. METHOTREXATE [Concomitant]
     Indication: RHEUMATOID ARTHRITIS
     Dosage: 2.5MG TOTAL DAILY DOSE, 7 PER WEEK
     Route: 048
  3. OMEPRAZOLE [Concomitant]
     Indication: GASTRIC DISORDER
     Route: 048
  4. PREDNISONE [Concomitant]
     Indication: RHEUMATOID ARTHRITIS
     Route: 048
  5. ANCORON [Concomitant]
     Indication: ARRHYTHMIA
     Dosage: 100MG,  1/2 CAPSULE PER DAY
     Route: 048
  6. SYNTHROID [Concomitant]
     Indication: THYROID DISORDER
     Dosage: 25MG, 1/2 CAPSULE PER DAY
     Route: 048
  7. RISEDRONATE SODIUM [Concomitant]
     Indication: OSTEOPOROSIS
     Route: 048
  8. ALENDRONATE SODIUM [Concomitant]
     Indication: OSTEOPOROSIS
     Route: 048
  9. CALCIUM CARBONATE [Concomitant]
     Indication: BONE DISORDER
     Route: 048

REACTIONS (13)
  - ALOPECIA [None]
  - APPLICATION SITE HAEMATOMA [None]
  - APPLICATION SITE INFLAMMATION [None]
  - APPLICATION SITE WARMTH [None]
  - DERMATITIS [None]
  - HYPERKERATOSIS [None]
  - LOCALISED OEDEMA [None]
  - OSTEOPOROSIS [None]
  - PYREXIA [None]
  - RIB FRACTURE [None]
  - SINUSITIS [None]
  - SKIN DISCOLOURATION [None]
  - THYROID DISORDER [None]
